FAERS Safety Report 18559224 (Version 1)
Quarter: 2020Q4

REPORT INFORMATION
  Report Type: Spontaneous
  Country: US (occurrence: US)
  Receive Date: 20201126
  Receipt Date: 20201126
  Transmission Date: 20210114
  Serious: Yes (Hospitalization, Other)
  Sender: FDA-Public Use
  Company Number: None

PATIENT
  Age: 64 Year
  Sex: Female

DRUGS (1)
  1. POMALYST [Suspect]
     Active Substance: POMALIDOMIDE
     Indication: PLASMA CELL MYELOMA
     Dosage: 4MG DAILY X 21D / 28 D ORAL
     Route: 048
     Dates: start: 20200717, end: 20201007

REACTIONS (3)
  - Hemiparesis [None]
  - Dysarthria [None]
  - Dysstasia [None]

NARRATIVE: CASE EVENT DATE: 20201007
